FAERS Safety Report 5358684-X (Version None)
Quarter: 2007Q2

REPORT INFORMATION
  Report Type: 
  Country: None (occurrence: None)
  Receive Date: 20070615
  Receipt Date: 20070604
  Transmission Date: 20071010
  Serious: No
  Sender: FDA-Public Use
  Company Number: US-JNJFOC-20070601231

PATIENT
  Age: 26 Year
  Sex: Female

DRUGS (3)
  1. INVEGA [Suspect]
     Indication: DRUG THERAPY
     Route: 048
  2. LEXAPRO [Concomitant]
  3. ALBUTEROL [Concomitant]

REACTIONS (1)
  - GALACTORRHOEA [None]
